FAERS Safety Report 14935742 (Version 1)
Quarter: 2018Q2

REPORT INFORMATION
  Report Type: Report from Study
  Country: US (occurrence: US)
  Receive Date: 20180524
  Receipt Date: 20180524
  Transmission Date: 20180711
  Serious: Yes (Hospitalization)
  Sender: FDA-Public Use
  Company Number: US-ACTELION-A-NJ2018-166331

PATIENT
  Age: 20 Month
  Sex: Male

DRUGS (1)
  1. BOSENTAN TABLET 32 MG PED US [Suspect]
     Active Substance: BOSENTAN
     Indication: PULMONARY ARTERIAL HYPERTENSION
     Dosage: 16 MG, BID
     Route: 048
     Dates: start: 20170531

REACTIONS (7)
  - Cardiac operation [Unknown]
  - Dyspnoea [Not Recovered/Not Resolved]
  - Respiratory distress [Recovering/Resolving]
  - Haematochezia [Unknown]
  - Heart disease congenital [Recovering/Resolving]
  - Cardiac septal defect repair [Unknown]
  - Condition aggravated [Recovering/Resolving]
